FAERS Safety Report 6283801-7 (Version None)
Quarter: 2009Q3

REPORT INFORMATION
  Report Type: 
  Country: None (occurrence: None)
  Receive Date: 20090724
  Receipt Date: 20090610
  Transmission Date: 20100115
  Serious: Yes (Other)
  Sender: FDA-Public Use
  Company Number: TH-PFIZER INC-2009224145

PATIENT

DRUGS (15)
  1. NEURONTIN [Suspect]
     Indication: PAIN IN EXTREMITY
     Dosage: 100 MG, 3X/DAY
     Route: 048
     Dates: end: 20090401
  2. NEURONTIN [Suspect]
     Indication: HYPOAESTHESIA
  3. LYRICA [Suspect]
     Indication: PAIN IN EXTREMITY
     Dosage: UNK MG, UNK
     Route: 048
     Dates: end: 20090602
  4. LYRICA [Suspect]
     Indication: HYPOAESTHESIA
  5. ARCOXIA [Suspect]
     Indication: PAIN IN EXTREMITY
     Dosage: 90 MG, 1X/DAY
     Route: 048
     Dates: end: 20090401
  6. ARCOXIA [Suspect]
     Indication: HYPOAESTHESIA
  7. VITAMIN B COMPLEX CAP [Concomitant]
     Dosage: UNK
     Route: 048
     Dates: start: 20080101, end: 20081001
  8. MOBIC [Concomitant]
     Dosage: UNK
     Route: 048
     Dates: start: 20080101, end: 20081001
  9. NORGESIC [Concomitant]
     Dosage: UNK
     Route: 048
     Dates: start: 20080101, end: 20081001
  10. TRAMADOL HCL [Concomitant]
     Dosage: UNK
     Route: 048
     Dates: start: 20081017
  11. TYLENOL W/ CODEINE [Concomitant]
     Dosage: UNK
     Route: 048
     Dates: start: 20081017, end: 20090101
  12. TIZANIDINE HCL [Concomitant]
     Dosage: UNK
     Route: 048
     Dates: start: 20081017, end: 20090602
  13. PARACETAMOL [Concomitant]
     Dosage: UNK
     Route: 048
     Dates: start: 20090101
  14. CLONAZEPAM [Concomitant]
     Dosage: 0.5 MG, 2X/DAY
  15. AMITRIPTYLINE [Concomitant]
     Dosage: 10 MG, 2X/DAY

REACTIONS (3)
  - EYE SWELLING [None]
  - OEDEMA MOUTH [None]
  - TONGUE OEDEMA [None]
